FAERS Safety Report 8141626-1 (Version None)
Quarter: 2012Q1

REPORT INFORMATION
  Report Type: 
  Country: None (occurrence: None)
  Receive Date: 20120216
  Receipt Date: 20120210
  Transmission Date: 20120608
  Serious: Yes (Life-Threatening, Other)
  Sender: FDA-Public Use
  Company Number: FR-JNJFOC-20110406209

PATIENT
  Sex: Male
  Weight: 2.88 kg

DRUGS (6)
  1. RISPERDAL [Suspect]
     Indication: FOETAL EXPOSURE DURING PREGNANCY
     Route: 064
     Dates: start: 20090706, end: 20100316
  2. METHADONE HCL [Suspect]
     Indication: FOETAL EXPOSURE DURING PREGNANCY
     Route: 064
     Dates: start: 20090706, end: 20100316
  3. TERCIAN [Suspect]
     Indication: FOETAL EXPOSURE DURING PREGNANCY
     Route: 064
     Dates: start: 20100104, end: 20100316
  4. PROZAC [Suspect]
     Indication: FOETAL EXPOSURE DURING PREGNANCY
     Route: 064
     Dates: start: 20090706, end: 20100316
  5. OXAZEPAM [Suspect]
     Indication: FOETAL EXPOSURE DURING PREGNANCY
     Route: 064
     Dates: start: 20090706, end: 20100316
  6. FERROUS SULFATE TAB [Suspect]
     Indication: FOETAL EXPOSURE DURING PREGNANCY
     Route: 064

REACTIONS (2)
  - VENTRICULAR ASYSTOLE [None]
  - RESPIRATORY ARREST [None]
